FAERS Safety Report 5011609-9 (Version None)
Quarter: 2006Q2

REPORT INFORMATION
  Report Type: 
  Country: None (occurrence: None)
  Receive Date: 20060404
  Receipt Date: 20060118
  Transmission Date: 20061013
  Serious: No
  Sender: FDA-Public Use
  Company Number: US200601003093

PATIENT
  Age: 55 Year
  Sex: Female

DRUGS (5)
  1. CYMBALTA [Suspect]
     Indication: BACK PAIN
     Dosage: 60 MG
     Dates: start: 20060113
  2. VICODIN [Concomitant]
  3. SOMA [Concomitant]
  4. HORMONES AND REALATED AGENTS [Concomitant]
  5. DIURETICS [Concomitant]

REACTIONS (8)
  - ANOREXIA [None]
  - ASTHENIA [None]
  - CONSTIPATION [None]
  - ENERGY INCREASED [None]
  - FATIGUE [None]
  - NAUSEA [None]
  - NERVOUSNESS [None]
  - SOMNOLENCE [None]
